FAERS Safety Report 4752731-1 (Version None)
Quarter: 2005Q3

REPORT INFORMATION
  Report Type: 
  Country: None (occurrence: None)
  Receive Date: 20050823
  Receipt Date: 20050618
  Transmission Date: 20060218
  Serious: Yes (Other)
  Sender: FDA-Public Use
  Company Number: 2005090305

PATIENT
  Age: 83 Year
  Sex: Male

DRUGS (5)
  1. NORVASC [Suspect]
     Indication: HYPERTENSION
     Dosage: 10 MG (5 MG,2 IN 1 D), ORAL; ABOUT TWO YEARS AGO
     Route: 048
     Dates: end: 20050601
  2. TOPROL (METOPROLOL) [Concomitant]
  3. MEMANTINE HCL [Concomitant]
  4. ISOSORBIDE (ISOSORBIDE) [Concomitant]
  5. LIPITOR [Concomitant]

REACTIONS (5)
  - FEELING ABNORMAL [None]
  - PITTING OEDEMA [None]
  - POLLAKIURIA [None]
  - PRURITUS [None]
  - WEIGHT INCREASED [None]
